FAERS Safety Report 6707497-2 (Version None)
Quarter: 2010Q2

REPORT INFORMATION
  Report Type: 
  Country: None (occurrence: None)
  Receive Date: 20100503
  Receipt Date: 20090319
  Transmission Date: 20101027
  Serious: Yes (Other)
  Sender: FDA-Public Use
  Company Number: US-BAYER-200916278NA

PATIENT
  Age: 34 Year
  Sex: Female

DRUGS (1)
  1. AVELOX [Suspect]
     Indication: PHARYNGITIS
     Dates: start: 20090316, end: 20090317

REACTIONS (6)
  - APHASIA [None]
  - ARTHRALGIA [None]
  - DYSKINESIA [None]
  - INSOMNIA [None]
  - MENTAL DISORDER [None]
  - MUSCLE TIGHTNESS [None]
